FAERS Safety Report 11180549 (Version 1)
Quarter: 2015Q2

REPORT INFORMATION
  Report Type: Spontaneous
  Country: US (occurrence: US)
  Receive Date: 20150611
  Receipt Date: 20150611
  Transmission Date: 20150821
  Serious: No
  Sender: FDA-Public Use
  Company Number: US-ASTRAZENECA-2015SE52001

PATIENT

DRUGS (1)
  1. MERREM [Suspect]
     Active Substance: MEROPENEM
     Route: 040

REACTIONS (1)
  - Administration site extravasation [Unknown]
